FAERS Safety Report 9949079 (Version 2)
Quarter: 2014Q2

REPORT INFORMATION
  Report Type: Spontaneous
  Country: US (occurrence: None)
  Receive Date: 20140122
  Receipt Date: 20140421
  Transmission Date: 20141212
  Serious: No
  Sender: FDA-Public Use
  Company Number: AEGR000188

PATIENT
  Age: 66 Year
  Sex: Female
  Weight: 116.6 kg

DRUGS (16)
  1. JUXTAPID [Suspect]
     Indication: TYPE IIA HYPERLIPIDAEMIA
     Route: 048
     Dates: start: 20131001, end: 201312
  2. BENADRYL (DIPHENHYDRAMINE HYDROCHLORIDE) [Concomitant]
  3. BONIVA (IBANDRONATE SODIUM) [Concomitant]
  4. FLEXERIL (CYCLOBENZAPRINE HYDROCHLORIDE) [Concomitant]
  5. IBUPROFEN (IBUPROFEN) [Concomitant]
  6. LISINOPRIL (LISINOPRIL) [Concomitant]
  7. LOVAZA (OMEGA-3-ACID ETHYL ESTER) [Concomitant]
  8. NEXIUM I.V. [Concomitant]
  9. PROAIR HFA (SALBUTAMOL SULFATE) [Concomitant]
  10. TYLENOL (PARACETAMOL) [Concomitant]
  11. SYNTHROID (LEVOTHYROXINE SODIUM) [Concomitant]
  12. MULTIVITAMIN (VITAMINS NOS) [Concomitant]
  13. COQ10 (UBIDECARENONE) [Concomitant]
  14. B-12 (CYANOCOBALAMIN) [Concomitant]
  15. WELCHOL (COLESEVELAM HYDROCHLORIDE) (625 MILLIGRAM, TABLET) (COLESEVELAM HYDROCHLORIDE) [Concomitant]
  16. ZETIA (EZETIMIBE) [Concomitant]

REACTIONS (5)
  - Myalgia [None]
  - Oropharyngeal pain [None]
  - Sinus operation [None]
  - Off label use [None]
  - Respiratory disorder [None]
